FAERS Safety Report 20369663 (Version 1)
Quarter: 2022Q1

REPORT INFORMATION
  Report Type: Other
  Country: MX (occurrence: None)
  Receive Date: 20220124
  Receipt Date: 20220124
  Transmission Date: 20220423
  Serious: Yes (Other)
  Sender: FDA-Public Use
  Company Number: MX-ROCHE-3005705

PATIENT

DRUGS (2)
  1. RITUXIMAB [Suspect]
     Active Substance: RITUXIMAB
     Indication: Acute lymphocytic leukaemia
     Route: 041
  2. DEXAMETHASONE [Suspect]
     Active Substance: DEXAMETHASONE
     Indication: Acute lymphocytic leukaemia
     Route: 065

REACTIONS (9)
  - Blood bilirubin increased [Unknown]
  - Transaminases increased [Unknown]
  - Hyperglycaemia [Unknown]
  - Hypofibrinogenaemia [Unknown]
  - Thrombosis [Unknown]
  - Hypersensitivity [Unknown]
  - Pancreatitis [Unknown]
  - Hepatotoxicity [Unknown]
  - Febrile neutropenia [Unknown]
